FAERS Safety Report 8020428-0 (Version None)
Quarter: 2012Q1

REPORT INFORMATION
  Report Type: 
  Country: None (occurrence: None)
  Receive Date: 20120103
  Receipt Date: 20111229
  Transmission Date: 20120608
  Serious: Yes (Hospitalization)
  Sender: FDA-Public Use
  Company Number: IL-SANOFI-AVENTIS-2011SA083862

PATIENT
  Age: 75 Year
  Sex: Male

DRUGS (9)
  1. BONDORMIN [Concomitant]
     Dosage: MANY YEARS (NOS).
     Route: 065
  2. AMLODIPINE BESYLATE [Concomitant]
     Route: 065
  3. BISOPROLOL [Concomitant]
     Route: 065
  4. SIMVASTATIN [Concomitant]
     Route: 065
  5. OPHTHALMOLOGICALS [Concomitant]
     Indication: GLAUCOMA
     Route: 047
  6. ASPIRIN [Concomitant]
     Route: 065
  7. AMBIEN CR [Suspect]
     Route: 048
  8. COUMADIN [Concomitant]
     Route: 065
  9. GLUCOPHAGE [Concomitant]
     Route: 065

REACTIONS (2)
  - TRANSIENT ISCHAEMIC ATTACK [None]
  - CONFUSIONAL STATE [None]
